FAERS Safety Report 11225426 (Version 1)
Quarter: 2015Q2

REPORT INFORMATION
  Report Type: Spontaneous
  Country: US (occurrence: None)
  Receive Date: 20150626
  Receipt Date: 20150626
  Transmission Date: 20150821
  Serious: Yes (Life-Threatening, Hospitalization, Disabling, Other)
  Sender: FDA-Public Use
  Company Number: None

PATIENT
  Age: 50 Year
  Sex: Female
  Weight: 77.11 kg

DRUGS (2)
  1. FETZIMA [Suspect]
     Active Substance: LEVOMILNACIPRAN HYDROCHLORIDE
     Indication: DEPRESSION
     Route: 048
  2. CLOZAPINE 100MG ? I WILL FIND OUT [Suspect]
     Active Substance: CLOZAPINE
     Indication: SCHIZOAFFECTIVE DISORDER
     Dosage: 6 PILLS
     Route: 048

REACTIONS (8)
  - Somnolence [None]
  - Foot fracture [None]
  - Respiratory arrest [None]
  - Cardiac arrest [None]
  - Malaise [None]
  - Lower limb fracture [None]
  - Fall [None]
  - Depression [None]
